FAERS Safety Report 18440138 (Version 1)
Quarter: 2020Q4

REPORT INFORMATION
  Report Type: Spontaneous
  Country: US (occurrence: US)
  Receive Date: 20201028
  Receipt Date: 20201028
  Transmission Date: 20210114
  Serious: Yes (Hospitalization)
  Sender: FDA-Public Use
  Company Number: None

PATIENT
  Age: 59 Year
  Sex: Male
  Weight: 100.1 kg

DRUGS (4)
  1. OXALIPLATIN. [Suspect]
     Active Substance: OXALIPLATIN
  2. LEUCOVORIN. [Suspect]
     Active Substance: LEUCOVORIN
     Dosage: ?          OTHER FREQUENCY:Q2WEEKS;OTHER ROUTE:46 HOUR PUMP AND IV BOLUS?
  3. NIVOLUMAB [Suspect]
     Active Substance: NIVOLUMAB
     Dosage: ?          OTHER FREQUENCY:Q2WEEKS;?
     Route: 042
  4. FLUOROURACIL. [Suspect]
     Active Substance: FLUOROURACIL

REACTIONS (1)
  - SARS-CoV-2 test positive [None]

NARRATIVE: CASE EVENT DATE: 20201026
